FAERS Safety Report 9148799 (Version 3)
Quarter: 2013Q2

REPORT INFORMATION
  Report Type: Spontaneous
  Country: JP (occurrence: JP)
  Receive Date: 20130308
  Receipt Date: 20130522
  Transmission Date: 20140414
  Serious: Yes (Hospitalization)
  Sender: FDA-Public Use
  Company Number: PHHY2013JP022376

PATIENT
  Age: 73 Year
  Sex: Male

DRUGS (1)
  1. VOLTAREN [Suspect]
     Dosage: UNK UKN, UNK
     Route: 048

REACTIONS (13)
  - Gastrointestinal disorder [Recovered/Resolved]
  - Phlebosclerosis [Recovered/Resolved]
  - Vein wall hypertrophy [Recovered/Resolved]
  - Vascular stenosis [Recovered/Resolved]
  - Ileal stenosis [Recovered/Resolved]
  - Large intestinal stenosis [Recovered/Resolved]
  - Mucous stools [Recovered/Resolved]
  - Occult blood positive [Recovered/Resolved]
  - Enteritis [Recovered/Resolved]
  - Abdominal distension [Recovered/Resolved]
  - Enterocolitis [Recovered/Resolved]
  - Gastrointestinal ulcer [Recovered/Resolved]
  - Anaemia [Recovering/Resolving]
